FAERS Safety Report 16800489 (Version 3)
Quarter: 2019Q4

REPORT INFORMATION
  Report Type: Report from Study
  Country: US (occurrence: US)
  Receive Date: 20190912
  Receipt Date: 20191129
  Transmission Date: 20200122
  Serious: Yes (Other)
  Sender: FDA-Public Use
  Company Number: US-PFIZER INC-2019284223

PATIENT
  Age: 74 Year
  Sex: Female

DRUGS (2)
  1. IBRANCE [Suspect]
     Active Substance: PALBOCICLIB
     Indication: BREAST CANCER FEMALE
     Dosage: 125 MG, CYCLIC (ONCE A DAY 21 DAYS ON/7 DAYS OFF)
     Route: 048
     Dates: start: 20190604, end: 20191113
  2. ANASTRAZOLE [Suspect]
     Active Substance: ANASTROZOLE
     Dosage: UNK, DAILY
     Route: 048

REACTIONS (8)
  - White blood cell count decreased [Not Recovered/Not Resolved]
  - Arthritis [Unknown]
  - Product dose omission [Unknown]
  - Renal impairment [Unknown]
  - Condition aggravated [Unknown]
  - Dry skin [Unknown]
  - Hypoaesthesia [Unknown]
  - Neoplasm progression [Unknown]

NARRATIVE: CASE EVENT DATE: 2019
